FAERS Safety Report 24259734 (Version 1)
Quarter: 2024Q3

REPORT INFORMATION
  Report Type: Spontaneous
  Country: ZA (occurrence: None)
  Receive Date: 20240828
  Receipt Date: 20240828
  Transmission Date: 20241017
  Serious: Yes (Disabling)
  Sender: ASTRAZENECA
  Company Number: 2024A190969

PATIENT
  Age: 27759 Day
  Sex: Male

DRUGS (3)
  1. DAPAGLIFLOZIN PROPANEDIOL [Suspect]
     Active Substance: DAPAGLIFLOZIN PROPANEDIOL
     Indication: Diabetes mellitus
     Dosage: 10.0MG UNKNOWN
     Route: 048
  2. BISOPROLOL FUMARATE [Concomitant]
     Active Substance: BISOPROLOL FUMARATE
     Indication: Hypertension
  3. CARBILEV 25 25/250 MG [Concomitant]
     Indication: Parkinson^s disease

REACTIONS (1)
  - Aphasia [Unknown]
